FAERS Safety Report 6755926-0 (Version None)
Quarter: 2010Q2

REPORT INFORMATION
  Report Type: 
  Country: None (occurrence: None)
  Receive Date: 20100603
  Receipt Date: 20100603
  Transmission Date: 20101027
  Serious: Yes (Life-Threatening, Hospitalization)
  Sender: FDA-Public Use
  Company Number: None

PATIENT
  Age: 54 Year
  Sex: Female
  Weight: 79 kg

DRUGS (5)
  1. METHYLENE BLUE INJ. 10 ML VIAL 1% -10MG/ML- AMERICANREGENT, INC. SHIRL [Suspect]
     Indication: THYROIDECTOMY
     Dosage: 600 MG ONCE IV DRIP
     Route: 041
     Dates: start: 20091201, end: 20091201
  2. FOSAMAX [Concomitant]
  3. ESTRACE [Concomitant]
  4. EXCEDRIN (MIGRAINE) [Concomitant]
  5. PROZAC [Concomitant]

REACTIONS (13)
  - AGITATION [None]
  - CHILLS [None]
  - CONFUSIONAL STATE [None]
  - HYPERREFLEXIA [None]
  - HYPERTENSION [None]
  - HYPERTHERMIA [None]
  - HYPERTONIA [None]
  - MUSCLE RIGIDITY [None]
  - MYDRIASIS [None]
  - MYOCLONUS [None]
  - POST PROCEDURAL COMPLICATION [None]
  - SEROTONIN SYNDROME [None]
  - TREMOR [None]
